FAERS Safety Report 4282752-7 (Version None)
Quarter: 2004Q1

REPORT INFORMATION
  Report Type: 
  Country: None (occurrence: None)
  Receive Date: 20040130
  Receipt Date: 20030423
  Transmission Date: 20041129
  Serious: No
  Sender: FDA-Public Use
  Company Number: US-BRISTOL-MYERS SQUIBB COMPANY-12252144

PATIENT
  Age: 41 Year
  Sex: Female
  Weight: 47 kg

DRUGS (3)
  1. SERZONE [Suspect]
     Indication: DEPRESSION
     Dosage: DOSE TAPERED FROM 150 MG, 2 TABS SINCE SPRING-97,THEN 150 MG 3/4 TAB,THEN 150 MG 1/2 TAB
     Route: 048
     Dates: start: 19970101
  2. WELLBUTRIN [Concomitant]
  3. ALEVE [Concomitant]

REACTIONS (3)
  - ASTHENIA [None]
  - INFLUENZA [None]
  - NAUSEA [None]
